FAERS Safety Report 13644781 (Version 1)
Quarter: 2017Q2

REPORT INFORMATION
  Report Type: Spontaneous
  Country: US (occurrence: US)
  Receive Date: 20170612
  Receipt Date: 20170612
  Transmission Date: 20170830
  Serious: No
  Sender: FDA-Public Use
  Company Number: US-ROCHE-1469707

PATIENT
  Sex: Female

DRUGS (1)
  1. XELODA [Suspect]
     Active Substance: CAPECITABINE
     Indication: PRODUCT USED FOR UNKNOWN INDICATION
     Dosage: 3X500 MG
     Route: 065
     Dates: start: 20140809

REACTIONS (4)
  - Asthma [Unknown]
  - Drug dose omission [Unknown]
  - Rash [Unknown]
  - Nausea [Unknown]
